FAERS Safety Report 16568057 (Version 1)
Quarter: 2019Q3

REPORT INFORMATION
  Report Type: Spontaneous
  Country: US (occurrence: US)
  Receive Date: 20190712
  Receipt Date: 20190712
  Transmission Date: 20191004
  Serious: Yes (Hospitalization, Other)
  Sender: FDA-Public Use
  Company Number: US-SA-K201601802

PATIENT
  Age: 40 Year
  Sex: Female

DRUGS (6)
  1. MABCAMPATH [Suspect]
     Active Substance: ALEMTUZUMAB
     Dosage: 12 MG, QD
     Route: 041
     Dates: start: 20160104, end: 20160106
  2. ZANTAC [Concomitant]
     Active Substance: RANITIDINE HYDROCHLORIDE
     Indication: PREMEDICATION
     Route: 048
     Dates: start: 201601
  3. VALTREX [Concomitant]
     Active Substance: VALACYCLOVIR HYDROCHLORIDE
     Indication: PREMEDICATION
     Route: 065
     Dates: start: 201601
  4. MABCAMPATH [Suspect]
     Active Substance: ALEMTUZUMAB
     Indication: MULTIPLE SCLEROSIS
     Dosage: 12 MG, QD
     Route: 041
     Dates: start: 20151214, end: 20151215
  5. ACETAMINOPHEN. [Concomitant]
     Active Substance: ACETAMINOPHEN
     Indication: PREMEDICATION
     Route: 065
     Dates: start: 201601
  6. NOT TRANSLATED [Concomitant]
     Indication: PREMEDICATION
     Route: 065
     Dates: start: 201601

REACTIONS (10)
  - Chest pain [Unknown]
  - Myocardial necrosis marker increased [Recovered/Resolved]
  - Catheterisation cardiac [Unknown]
  - Chills [Unknown]
  - Fatigue [Unknown]
  - Acute myocardial infarction [Unknown]
  - Back pain [Unknown]
  - Pain [Recovered/Resolved]
  - Cardiac disorder [Unknown]
  - Blood pressure increased [Unknown]

NARRATIVE: CASE EVENT DATE: 201512
